FAERS Safety Report 7594313-2 (Version None)
Quarter: 2011Q3

REPORT INFORMATION
  Report Type: 
  Country: None (occurrence: None)
  Receive Date: 20110706
  Receipt Date: 20110627
  Transmission Date: 20111222
  Serious: Yes (Hospitalization, Other)
  Sender: FDA-Public Use
  Company Number: US-ASTRAZENECA-2011SE38732

PATIENT
  Age: 52 Year
  Sex: Female

DRUGS (3)
  1. SYMBICORT [Suspect]
     Dosage: DAILY
     Route: 055
  2. SEROQUEL XR [Suspect]
     Route: 048
  3. SYMBICORT [Suspect]
     Dosage: AS REQUIRED
     Route: 055

REACTIONS (2)
  - PNEUMONIA [None]
  - PULMONARY THROMBOSIS [None]
